FAERS Safety Report 6231736-8 (Version None)
Quarter: 2009Q2

REPORT INFORMATION
  Report Type: 
  Country: None (occurrence: None)
  Receive Date: 20090616
  Receipt Date: 20090604
  Transmission Date: 20091009
  Serious: Yes (Other)
  Sender: FDA-Public Use
  Company Number: JP-PFIZER INC-2009225373

PATIENT

DRUGS (1)
  1. XALATAN [Suspect]
     Route: 031
     Dates: start: 20081201, end: 20090101

REACTIONS (4)
  - CATARACT [None]
  - MACULAR DEGENERATION [None]
  - MYODESOPSIA [None]
  - RETINAL OEDEMA [None]
